FAERS Safety Report 6609154-X (Version None)
Quarter: 2010Q1

REPORT INFORMATION
  Report Type: 
  Country: None (occurrence: None)
  Receive Date: 20100226
  Receipt Date: 20100226
  Transmission Date: 20100710
  Serious: Yes (Other)
  Sender: FDA-Public Use
  Company Number: None

PATIENT
  Age: 48 Year
  Sex: Male
  Weight: 99.7913 kg

DRUGS (1)
  1. WELLBUTRIN XL [Suspect]

REACTIONS (3)
  - LICHENOID KERATOSIS [None]
  - PHOTOSENSITIVITY REACTION [None]
  - PIGMENTATION DISORDER [None]
